FAERS Safety Report 19358522 (Version 1)
Quarter: 2021Q2

REPORT INFORMATION
  Report Type: Spontaneous
  Country: US (occurrence: US)
  Receive Date: 20210602
  Receipt Date: 20210602
  Transmission Date: 20210717
  Serious: Yes (Hospitalization)
  Sender: FDA-Public Use
  Company Number: None

PATIENT
  Age: 72 Year
  Sex: Male

DRUGS (8)
  1. IRON [Concomitant]
     Active Substance: IRON
  2. CALCIFEROL [Concomitant]
  3. OXYBUTININ [Concomitant]
     Active Substance: OXYBUTYNIN
  4. MAYZENT [Suspect]
     Active Substance: SIPONIMOD
     Indication: MULTIPLE SCLEROSIS
     Route: 048
     Dates: start: 20210421
  5. SYNTHROID [Concomitant]
     Active Substance: LEVOTHYROXINE SODIUM
  6. BACLOFEN. [Concomitant]
     Active Substance: BACLOFEN
  7. LOVASTATIN. [Concomitant]
     Active Substance: LOVASTATIN
  8. TRIMEHTOPRIM [Concomitant]

REACTIONS (1)
  - Transient ischaemic attack [None]
